FAERS Safety Report 6733368-1 (Version None)
Quarter: 2010Q2

REPORT INFORMATION
  Report Type: 
  Country: None (occurrence: None)
  Receive Date: 20100520
  Receipt Date: 20100511
  Transmission Date: 20101027
  Serious: Yes (Hospitalization)
  Sender: FDA-Public Use
  Company Number: GB-JNJFOC-20100504293

PATIENT
  Sex: Male

DRUGS (6)
  1. STELARA [Suspect]
     Indication: PSORIASIS
     Route: 058
  2. METHOTREXATE [Concomitant]
     Indication: SKIN DISORDER
     Route: 048
  3. METHOTREXATE [Concomitant]
     Indication: ARTHROPATHY
     Route: 048
  4. PARACETAMOL [Concomitant]
     Indication: ARTHROPATHY
     Route: 048
  5. PREDNISOLONE [Concomitant]
     Indication: PAIN
     Route: 048
  6. TRAMADOL HCL [Concomitant]
     Indication: ARTHROPATHY
     Route: 048

REACTIONS (2)
  - MUSCULOSKELETAL PAIN [None]
  - PSORIASIS [None]
